FAERS Safety Report 21187623 (Version 3)
Quarter: 2022Q3

REPORT INFORMATION
  Report Type: Spontaneous
  Country: US (occurrence: None)
  Receive Date: 20220808
  Receipt Date: 20220923
  Transmission Date: 20221027
  Serious: No
  Sender: FDA-Public Use
  Company Number: 2022A255385

PATIENT
  Age: 53 Year
  Sex: Female
  Weight: 117.5 kg

DRUGS (1)
  1. TEZSPIRE [Suspect]
     Active Substance: TEZEPELUMAB-EKKO
     Indication: Asthma
     Route: 058
     Dates: start: 20220624, end: 20220624

REACTIONS (3)
  - Intervertebral disc protrusion [Unknown]
  - Neck pain [Recovered/Resolved]
  - Arthralgia [Unknown]
